FAERS Safety Report 5656805-2 (Version None)
Quarter: 2008Q1

REPORT INFORMATION
  Report Type: 
  Country: None (occurrence: None)
  Receive Date: 20080306
  Receipt Date: 20080306
  Transmission Date: 20080703
  Serious: No
  Sender: FDA-Public Use
  Company Number: None

PATIENT
  Age: 82 Year
  Sex: Female
  Weight: 59.4212 kg

DRUGS (1)
  1. APHTHASOL [Suspect]
     Indication: MOUTH ULCERATION
     Dosage: APPLIED TO A SINGLE MOUTH ULCE
     Dates: start: 20070913, end: 20080303

REACTIONS (1)
  - OEDEMA MOUTH [None]
